FAERS Safety Report 12244614 (Version 3)
Quarter: 2016Q4

REPORT INFORMATION
  Report Type: Spontaneous
  Country: BR (occurrence: BR)
  Receive Date: 20160407
  Receipt Date: 20161104
  Transmission Date: 20170207
  Serious: Yes (Other)
  Sender: FDA-Public Use
  Company Number: BR-ROCHE-1736697

PATIENT
  Age: 75 Year
  Sex: Female
  Weight: 80 kg

DRUGS (11)
  1. PURAN [Concomitant]
     Active Substance: LEVOTHYROXINE SODIUM
     Route: 048
  2. CHLORAMBUCIL [Suspect]
     Active Substance: CHLORAMBUCIL
     Indication: CHRONIC LYMPHOCYTIC LEUKAEMIA
     Route: 065
     Dates: start: 20160316
  3. EZETROL [Concomitant]
     Active Substance: EZETIMIBE
     Route: 048
  4. VESICARE [Concomitant]
     Active Substance: SOLIFENACIN SUCCINATE
     Route: 048
  5. ELIQUIS [Concomitant]
     Active Substance: APIXABAN
     Route: 048
  6. SLOW K [Concomitant]
     Active Substance: POTASSIUM CHLORIDE
     Route: 048
  7. ANCORON [Concomitant]
     Active Substance: AMIODARONE HYDROCHLORIDE
     Route: 048
  8. GAZYVA [Suspect]
     Active Substance: OBINUTUZUMAB
     Indication: CHRONIC LYMPHOCYTIC LEUKAEMIA
     Route: 042
     Dates: start: 20160316
  9. PRELONE [Concomitant]
     Active Substance: PREDNISOLONE
     Route: 048
  10. CRESTOR [Concomitant]
     Active Substance: ROSUVASTATIN CALCIUM
     Route: 048
  11. NEXIUM [Concomitant]
     Active Substance: ESOMEPRAZOLE MAGNESIUM
     Route: 048

REACTIONS (4)
  - Oxygen saturation decreased [Recovered/Resolved]
  - Restlessness [Recovered/Resolved]
  - Hypertension [Recovered/Resolved]
  - Back pain [Recovered/Resolved]

NARRATIVE: CASE EVENT DATE: 20160316
